FAERS Safety Report 10129532 (Version 1)
Quarter: 2014Q2

REPORT INFORMATION
  Report Type: Spontaneous
  Country: US (occurrence: None)
  Receive Date: 20140425
  Receipt Date: 20140425
  Transmission Date: 20141212
  Serious: Yes (Hospitalization)
  Sender: FDA-Public Use
  Company Number: None

PATIENT
  Age: 81 Year
  Sex: Male
  Weight: 99.5 kg

DRUGS (12)
  1. PRADAXA [Suspect]
     Indication: ATRIAL FIBRILLATION
     Route: 048
     Dates: end: 20140422
  2. VERAPAMIL SR [Concomitant]
  3. LISINOPRIL [Concomitant]
  4. HCTZ [Concomitant]
  5. KCL [Concomitant]
  6. PRADAXA [Concomitant]
  7. SOTALOL [Concomitant]
  8. LIVALO [Concomitant]
  9. ZETIA [Concomitant]
  10. FIBERCON [Concomitant]
  11. KRILL OIL [Concomitant]
  12. MULTI VITAMIN [Concomitant]

REACTIONS (1)
  - Diverticulum intestinal haemorrhagic [None]
